FAERS Safety Report 6879358-X (Version None)
Quarter: 2010Q3

REPORT INFORMATION
  Report Type: 
  Country: None (occurrence: None)
  Receive Date: 20100728
  Receipt Date: 20100716
  Transmission Date: 20110219
  Serious: Yes (Death, Life-Threatening, Hospitalization)
  Sender: FDA-Public Use
  Company Number: JP-WYE-H15922610

PATIENT
  Sex: Female

DRUGS (4)
  1. ZOSYN [Suspect]
     Indication: PNEUMONIA
     Route: 041
     Dates: start: 20100623, end: 20100624
  2. HEPARIN [Concomitant]
     Indication: ANGINA UNSTABLE
     Route: 041
     Dates: start: 20100623
  3. LASIX [Concomitant]
     Indication: CARDIAC FAILURE
     Route: 042
     Dates: start: 20100623, end: 20100624
  4. SOLITA-T3 [Concomitant]
     Dates: start: 20100623

REACTIONS (5)
  - CONCOMITANT DISEASE PROGRESSION [None]
  - DIABETIC NEPHROPATHY [None]
  - HEPATIC FAILURE [None]
  - HEPATITIS FULMINANT [None]
  - LACTIC ACIDOSIS [None]
